FAERS Safety Report 7097590-X (Version None)
Quarter: 2010Q4

REPORT INFORMATION
  Report Type: 
  Country: None (occurrence: None)
  Receive Date: 20101111
  Receipt Date: 20101105
  Transmission Date: 20110411
  Serious: Yes (Hospitalization)
  Sender: FDA-Public Use
  Company Number: NL-ABBOTT-10P-114-0683452-00

PATIENT
  Sex: Female
  Weight: 51.7 kg

DRUGS (5)
  1. HUMIRA [Suspect]
     Indication: RHEUMATOID ARTHRITIS
     Route: 058
     Dates: start: 20100610, end: 20100916
  2. HUMIRA [Suspect]
     Route: 058
     Dates: start: 20101104
  3. ACENOCOUMAROL [Concomitant]
     Indication: ANTICOAGULANT THERAPY
     Dosage: ACCORDING TO SCHEDULE
     Route: 048
     Dates: start: 19900101
  4. OMEPRAZOLE [Concomitant]
     Indication: GASTRIC DISORDER
     Route: 048
  5. OMEPRAZOLE [Concomitant]
     Indication: PROPHYLAXIS

REACTIONS (2)
  - HAEMATOCHEZIA [None]
  - LOCALISED OEDEMA [None]
